FAERS Safety Report 25853966 (Version 1)
Quarter: 2025Q3

REPORT INFORMATION
  Report Type: Spontaneous
  Country: US (occurrence: US)
  Receive Date: 20250926
  Receipt Date: 20250926
  Transmission Date: 20251020
  Serious: No
  Sender: ELI LILLY AND COMPANY
  Company Number: US-ELI_LILLY_AND_COMPANY-US202509023955

PATIENT
  Age: 51 Year
  Sex: Female

DRUGS (2)
  1. TALTZ [Suspect]
     Active Substance: IXEKIZUMAB
     Indication: Ankylosing spondylitis
     Route: 058
  2. TALTZ [Suspect]
     Active Substance: IXEKIZUMAB
     Route: 058

REACTIONS (2)
  - Eye haemorrhage [Unknown]
  - COVID-19 [Recovered/Resolved]
